FAERS Safety Report 7737050-3 (Version None)
Quarter: 2011Q3

REPORT INFORMATION
  Report Type: 
  Country: None (occurrence: None)
  Receive Date: 20110908
  Receipt Date: 20110831
  Transmission Date: 20111222
  Serious: Yes (Death)
  Sender: FDA-Public Use
  Company Number: TW-BAXTER-2011BH028222

PATIENT
  Sex: Male

DRUGS (4)
  1. DIANEAL [Suspect]
     Route: 033
     Dates: start: 20030601
  2. DIANEAL [Suspect]
     Indication: PERITONEAL DIALYSIS
     Route: 033
     Dates: start: 20030601
  3. DIANEAL [Suspect]
     Indication: PERITONEAL DIALYSIS
     Route: 033
     Dates: start: 20030601
  4. DIANEAL [Suspect]
     Route: 033
     Dates: start: 20030601

REACTIONS (1)
  - DEATH [None]
